FAERS Safety Report 15888914 (Version 1)
Quarter: 2019Q1

REPORT INFORMATION
  Report Type: Spontaneous
  Country: US (occurrence: US)
  Receive Date: 20190129
  Receipt Date: 20190129
  Transmission Date: 20190417
  Serious: No
  Sender: FDA-Public Use
  Company Number: None

PATIENT
  Sex: Male
  Weight: 91.8 kg

DRUGS (19)
  1. REPATHA [Suspect]
     Active Substance: EVOLOCUMAB
     Indication: DYSLIPIDAEMIA
     Dosage: ?          OTHER FREQUENCY:ONCE EVERY 2 WEEKS;?
     Route: 058
     Dates: start: 20181116, end: 20181219
  2. ASPIRIN 325MG [Concomitant]
     Active Substance: ASPIRIN
  3. NITROLINGUAL [Concomitant]
     Active Substance: NITROGLYCERIN
  4. AMLODIPINE 2.5MG [Concomitant]
     Active Substance: AMLODIPINE BESYLATE
  5. DOCUSATE 100MG [Concomitant]
     Active Substance: DOCUSATE
  6. NOVOLOG [Concomitant]
     Active Substance: INSULIN ASPART
  7. NALDEMEDINE [Concomitant]
     Active Substance: NALDEMEDINE
  8. ALPRAZOLAM 0.5MG [Concomitant]
     Active Substance: ALPRAZOLAM
  9. RELISTOR [Concomitant]
     Active Substance: METHYLNALTREXONE BROMIDE
  10. PANTOPRAZOLE 40MG [Concomitant]
     Active Substance: PANTOPRAZOLE SODIUM
  11. CLOBETASOL 0.05% CREAM [Concomitant]
  12. GABAPENTIN 300MG [Concomitant]
     Active Substance: GABAPENTIN
  13. CYANOCOBALAMIN 1000MCG TABLET [Concomitant]
  14. NORCO 10-325MG [Concomitant]
  15. METOPROLOL SUCCINATE 25MG [Concomitant]
     Active Substance: METOPROLOL SUCCINATE
  16. VENLAFAXINE 75MG [Concomitant]
     Active Substance: VENLAFAXINE HYDROCHLORIDE
  17. BISACODYL 5MG [Concomitant]
  18. VALACYCLOVIR 1000MG [Concomitant]
  19. LEVOTHYROXINE 112MCG [Concomitant]
     Active Substance: LEVOTHYROXINE

REACTIONS (5)
  - Arthralgia [None]
  - Abdominal pain upper [None]
  - Hypoaesthesia [None]
  - Back pain [None]
  - Hypokinesia [None]
